FAERS Safety Report 16385410 (Version 2)
Quarter: 2019Q2

REPORT INFORMATION
  Report Type: Spontaneous
  Country: JP (occurrence: JP)
  Receive Date: 20190603
  Receipt Date: 20190608
  Transmission Date: 20190711
  Serious: Yes (Death, Life-Threatening, Hospitalization, Other)
  Sender: FDA-Public Use
  Company Number: JP-TAKEDA-2019TJP012411

PATIENT
  Age: 8 Decade
  Sex: Male

DRUGS (2)
  1. OMEPRAZOLE. [Concomitant]
     Active Substance: OMEPRAZOLE
     Dosage: UNK, MONTHLY
     Route: 042
     Dates: start: 201904
  2. TAKEPRON INTRAVENOUS 30MG. [Suspect]
     Active Substance: LANSOPRAZOLE
     Indication: PRODUCT USED FOR UNKNOWN INDICATION
     Dosage: 30 MILLIGRAM, BID
     Route: 050
     Dates: start: 2019, end: 201905

REACTIONS (3)
  - Toxic epidermal necrolysis [Fatal]
  - Decubitus ulcer [Fatal]
  - Blister [Fatal]

NARRATIVE: CASE EVENT DATE: 201905
